FAERS Safety Report 8594959-9 (Version None)
Quarter: 2012Q3

REPORT INFORMATION
  Report Type: 
  Country: None (occurrence: None)
  Receive Date: 20120815
  Receipt Date: 20120809
  Transmission Date: 20120928
  Serious: Yes (Hospitalization)
  Sender: FDA-Public Use
  Company Number: PHHY2012BR069720

PATIENT
  Sex: Female
  Weight: 94 kg

DRUGS (6)
  1. DIOVAN [Suspect]
     Dosage: 1 TABLET, AT NIGHT
     Dates: start: 20120501
  2. CONDROFLEX [Concomitant]
     Indication: OSTEOARTHRITIS
     Dosage: 1 SACHET, DAILY
     Route: 048
  3. DIOSMIN SDU [Concomitant]
     Dosage: 1 SACHET, DAILY
  4. CLONAZEPAM [Concomitant]
     Dosage: 1 TABLET (0.5 MG), DAILY
  5. CLONAZEPAM [Concomitant]
     Indication: ANXIETY
     Dosage: 1 TABLET (0.25 MG), DAILY
  6. DIOVAN HCT [Suspect]
     Dosage: 1 DF (80/12.5 MG), DAILY

REACTIONS (3)
  - OSTEOARTHRITIS [None]
  - PAIN [None]
  - DYSSTASIA [None]
